FAERS Safety Report 10231606 (Version 1)
Quarter: 2014Q2

REPORT INFORMATION
  Report Type: Report from Study
  Country: IT (occurrence: IT)
  Receive Date: 20140611
  Receipt Date: 20140611
  Transmission Date: 20141212
  Serious: Yes (Other)
  Sender: FDA-Public Use
  Company Number: IT-TEVA-486447ISR

PATIENT
  Age: 72 Year
  Sex: Female

DRUGS (2)
  1. RIBAVIRIN [Suspect]
     Indication: CHRONIC HEPATITIS C
     Route: 048
     Dates: start: 20121123, end: 20130228
  2. INTERFERON ALFA-2A PEGYLATED [Suspect]
     Indication: CHRONIC HEPATITIS C
     Route: 030
     Dates: start: 20121123, end: 20130225

REACTIONS (1)
  - Femoral neck fracture [Unknown]
